FAERS Safety Report 11504690 (Version 1)
Quarter: 2015Q3

REPORT INFORMATION
  Report Type: Spontaneous
  Country: US (occurrence: US)
  Receive Date: 20150915
  Receipt Date: 20150915
  Transmission Date: 20151125
  Serious: No
  Sender: FDA-Public Use
  Company Number: US-009507513-1509USA007041

PATIENT
  Sex: Female

DRUGS (1)
  1. BELSOMRA [Suspect]
     Active Substance: SUVOREXANT
     Indication: INSOMNIA
     Dosage: 10 MG, UNSPECIFIED FREQUENCY, ONLY TOOK ONCE
     Route: 048

REACTIONS (2)
  - Poor quality sleep [Recovered/Resolved]
  - Influenza [Recovered/Resolved]
